FAERS Safety Report 22000351 (Version 2)
Quarter: 2023Q1

REPORT INFORMATION
  Report Type: Spontaneous
  Country: US (occurrence: US)
  Receive Date: 20230216
  Receipt Date: 20230227
  Transmission Date: 20230417
  Serious: Yes (Hospitalization, Other)
  Sender: FDA-Public Use
  Company Number: US-PFIZER INC-PV202300026704

PATIENT
  Age: 13 Month
  Sex: Male

DRUGS (1)
  1. LEVOFLOXACIN [Suspect]
     Active Substance: LEVOFLOXACIN
     Indication: Pseudomonal skin infection
     Dosage: UNK
     Route: 048

REACTIONS (2)
  - Intracranial pressure increased [Unknown]
  - Fontanelle bulging [Recovered/Resolved]
